FAERS Safety Report 8904030 (Version 3)
Quarter: 2013Q1

REPORT INFORMATION
  Report Type: Spontaneous
  Country: BR (occurrence: BR)
  Receive Date: 20121113
  Receipt Date: 20130128
  Transmission Date: 20140127
  Serious: Yes (Life-Threatening, Hospitalization, Other)
  Sender: FDA-Public Use
  Company Number: PHHY2012BR104162

PATIENT
  Age: 57 Year
  Sex: Female

DRUGS (7)
  1. FORASEQ [Suspect]
     Indication: ASTHMA
     Dosage: 1 DF, BID
     Dates: start: 1995, end: 1997
  2. FORASEQ [Suspect]
     Dosage: 1 DF
     Dates: start: 2009
  3. ATROVENT [Concomitant]
     Indication: BRONCHITIS
     Dosage: 3 DF
  4. BEROTEC [Concomitant]
     Indication: BRONCHITIS
     Dosage: 3 DF
  5. DIAZEPAM [Concomitant]
     Indication: INSOMNIA
     Dosage: 10 MG, 1 DF
     Route: 048
  6. DIAZEPAM [Concomitant]
     Indication: DEPRESSION
  7. OMEPRAZOLE [Concomitant]
     Indication: ABDOMINAL PAIN UPPER
     Dosage: 20 MG, 2 DF
     Route: 048

REACTIONS (7)
  - Coma [Recovering/Resolving]
  - Pneumonia [Recovered/Resolved]
  - Nervousness [Recovering/Resolving]
  - Bronchitis [Recovering/Resolving]
  - Pain [Not Recovered/Not Resolved]
  - Pyrexia [Not Recovered/Not Resolved]
  - Cough [Recovered/Resolved]
